FAERS Safety Report 4824715-6 (Version None)
Quarter: 2005Q4

REPORT INFORMATION
  Report Type: 
  Country: None (occurrence: None)
  Receive Date: 20051108
  Receipt Date: 20051019
  Transmission Date: 20060501
  Serious: Yes (Other)
  Sender: FDA-Public Use
  Company Number: DE_051017305

PATIENT
  Age: 9 Year
  Sex: Male

DRUGS (2)
  1. STRATTERA [Suspect]
     Indication: ATTENTION DEFICIT/HYPERACTIVITY DISORDER
     Dosage: 40 MG DAY
     Dates: start: 20050901
  2. JUNIK (BECLOMETASONE DIPROPIONATE) [Concomitant]

REACTIONS (2)
  - ABDOMINAL PAIN LOWER [None]
  - BLOOD AMYLASE INCREASED [None]
